FAERS Safety Report 20502092 (Version 1)
Quarter: 2022Q1

REPORT INFORMATION
  Report Type: Spontaneous
  Country: US (occurrence: US)
  Receive Date: 20220222
  Receipt Date: 20220222
  Transmission Date: 20220424
  Serious: No
  Sender: FDA-Public Use
  Company Number: US-NOVOPROD-783357

PATIENT
  Sex: Female

DRUGS (2)
  1. SAXENDA [Suspect]
     Active Substance: LIRAGLUTIDE
     Indication: Weight control
     Dosage: 1.2 MG, QD
     Route: 058
     Dates: start: 20210119
  2. SAXENDA [Suspect]
     Active Substance: LIRAGLUTIDE
     Dosage: 3 MG, QD
     Route: 058

REACTIONS (8)
  - Crying [Recovered/Resolved]
  - Anger [Recovered/Resolved]
  - Blood insulin decreased [Recovered/Resolved]
  - Mood altered [Recovered/Resolved]
  - Fatigue [Recovered/Resolved]
  - Weight loss poor [Not Recovered/Not Resolved]
  - Incorrect dose administered [Unknown]
  - Product communication issue [Unknown]

NARRATIVE: CASE EVENT DATE: 20210101
